FAERS Safety Report 18097126 (Version 1)
Quarter: 2020Q3

REPORT INFORMATION
  Report Type: Spontaneous
  Country: US (occurrence: US)
  Receive Date: 20200730
  Receipt Date: 20200730
  Transmission Date: 20201103
  Serious: No
  Sender: FDA-Public Use
  Company Number: None

PATIENT
  Sex: Female
  Weight: 62.55 kg

DRUGS (3)
  1. ELURYNG [Suspect]
     Active Substance: ETHINYL ESTRADIOL\ETONOGESTREL
     Indication: CONTRACEPTION
     Dosage: ?          OTHER FREQUENCY:LEAVE IN 3 WEEKS;?
     Route: 067
     Dates: start: 20200109, end: 20200730
  2. ELURYNG [Suspect]
     Active Substance: ETHINYL ESTRADIOL\ETONOGESTREL
     Indication: DYSMENORRHOEA
     Dosage: ?          OTHER FREQUENCY:LEAVE IN 3 WEEKS;?
     Route: 067
     Dates: start: 20200109, end: 20200730
  3. ALLERGY PILL [Concomitant]
     Active Substance: UNSPECIFIED INGREDIENT

REACTIONS (7)
  - Headache [None]
  - Menorrhagia [None]
  - Dysmenorrhoea [None]
  - Acne [None]
  - Back pain [None]
  - Product substitution issue [None]
  - Mood altered [None]
